FAERS Safety Report 7091552-4 (Version None)
Quarter: 2010Q4

REPORT INFORMATION
  Report Type: 
  Country: None (occurrence: None)
  Receive Date: 20101109
  Receipt Date: 20101025
  Transmission Date: 20110411
  Serious: Yes (Other)
  Sender: FDA-Public Use
  Company Number: FR-AMGEN-FRASP2010001697

PATIENT

DRUGS (1)
  1. ENBREL [Suspect]
     Indication: ANKYLOSING SPONDYLITIS
     Route: 058
     Dates: start: 20071001

REACTIONS (4)
  - DIABETES MELLITUS [None]
  - DIARRHOEA [None]
  - FATIGUE [None]
  - HEADACHE [None]
